FAERS Safety Report 10949970 (Version 6)
Quarter: 2016Q2

REPORT INFORMATION
  Report Type: Spontaneous
  Country: CA (occurrence: CA)
  Receive Date: 20150324
  Receipt Date: 20160608
  Transmission Date: 20160815
  Serious: Yes (Hospitalization)
  Sender: FDA-Public Use
  Company Number: CA-GLAXOSMITHKLINE-CA2014GSK009587

PATIENT
  Age: 45 Year
  Sex: Female
  Weight: 87 kg

DRUGS (3)
  1. BENLYSTA [Suspect]
     Active Substance: BELIMUMAB
     Dosage: 870 MG, Z
     Route: 042
     Dates: start: 20140915
  2. BENLYSTA [Suspect]
     Active Substance: BELIMUMAB
     Indication: SYSTEMIC LUPUS ERYTHEMATOSUS
     Dosage: 870 MG, Z
     Route: 042
     Dates: start: 20140915
  3. BENLYSTA [Suspect]
     Active Substance: BELIMUMAB
     Dosage: 700 MG, UNK
     Route: 042

REACTIONS (13)
  - Diarrhoea [Unknown]
  - Weight increased [Unknown]
  - Metrorrhagia [Unknown]
  - Vomiting [Recovering/Resolving]
  - Pyrexia [Unknown]
  - Contusion [Unknown]
  - Dehydration [Unknown]
  - Dizziness [Unknown]
  - Weight decreased [Unknown]
  - Pharyngitis [Recovering/Resolving]
  - Migraine [Recovering/Resolving]
  - Nausea [Recovering/Resolving]
  - Infusion [Unknown]

NARRATIVE: CASE EVENT DATE: 20140929
